FAERS Safety Report 9369559 (Version 1)
Quarter: 2013Q2

REPORT INFORMATION
  Report Type: Other
  Country: ES (occurrence: ES)
  Receive Date: 20130626
  Receipt Date: 20130626
  Transmission Date: 20140414
  Serious: Yes (Death)
  Sender: FDA-Public Use
  Company Number: ES-MILLENNIUM PHARMACEUTICALS, INC.-2013-04867

PATIENT
  Sex: 0

DRUGS (3)
  1. VELCADE [Suspect]
     Indication: PLASMA CELL MYELOMA
     Dosage: 1.8 MG, UNK
     Route: 065
     Dates: start: 20130103, end: 20130110
  2. MELPHALAN [Suspect]
     Indication: PLASMA CELL MYELOMA
     Dosage: 40 MG, UNK
     Route: 065
     Dates: start: 20130103, end: 20130110
  3. PREDNISONE [Concomitant]
     Indication: PLASMA CELL MYELOMA
     Dosage: 270 MG, UNK
     Dates: start: 20130103, end: 20130110

REACTIONS (2)
  - Encephalopathy [Fatal]
  - Pneumonitis [Fatal]
